FAERS Safety Report 8830416 (Version 1)
Quarter: 2012Q4

REPORT INFORMATION
  Report Type: 
  Country: NL (occurrence: NL)
  Receive Date: 20121009
  Receipt Date: 20121009
  Transmission Date: 20130627
  Serious: Yes (Other)
  Sender: FDA-Public Use
  Company Number: NL-PFIZER INC-2012246097

PATIENT
  Age: 59 Year
  Sex: Male

DRUGS (4)
  1. LIPITOR [Suspect]
     Dosage: 10 mg, UNK
     Dates: start: 1999
  2. LIPITOR [Suspect]
     Dosage: 20 mg, UNK
  3. LIPITOR [Suspect]
     Dosage: 40 mg, UNK
  4. ACENOCOUMAROL [Concomitant]
     Dosage: UNK

REACTIONS (1)
  - Angiopathy [Unknown]
